FAERS Safety Report 22031110 (Version 3)
Quarter: 2023Q1

REPORT INFORMATION
  Report Type: Report from Study
  Country: HU (occurrence: HU)
  Receive Date: 20230223
  Receipt Date: 20230315
  Transmission Date: 20230417
  Serious: Yes (Hospitalization)
  Sender: FDA-Public Use
  Company Number: HU-ABBVIE-4316000

PATIENT
  Sex: Female

DRUGS (10)
  1. CARBIDOPA\LEVODOPA [Suspect]
     Active Substance: CARBIDOPA\LEVODOPA
     Indication: Parkinson^s disease
     Dosage: MORNING DOSE: 8.8 ML, CONTINUOUS DOSE: 1.8 ML/HOUR, EXTRA DOSE: 1.4 ML
     Route: 050
     Dates: start: 20181206, end: 20230218
  2. CARBIDOPA\LEVODOPA [Suspect]
     Active Substance: CARBIDOPA\LEVODOPA
     Dosage: MORNING DOSE: 8.8 ML; CONTINUOUS DOSE: 1.8 ML/HOUR; EXTRA DOSE: 1.4 ML
     Route: 050
     Dates: start: 20230301
  3. XANAX [Concomitant]
     Active Substance: ALPRAZOLAM
     Indication: Product used for unknown indication
     Dosage: 1 MILLIGRAM
     Route: 048
     Dates: start: 2020
  4. .ALPHA.-LIPOIC ACID [Concomitant]
     Active Substance: .ALPHA.-LIPOIC ACID
     Indication: Diabetic neuropathy
     Dosage: 600 MILLIGRAM
     Route: 048
  5. Uroxal [Concomitant]
     Indication: Incontinence
     Dosage: 10 MILLIGRAM
     Route: 048
     Dates: start: 2021
  6. ASPIRIN [Concomitant]
     Active Substance: ASPIRIN
     Indication: Prophylaxis
     Dosage: 100 MILLIGRAM
     Route: 048
     Dates: start: 2015
  7. BENSERAZIDE HYDROCHLORIDE\LEVODOPA [Concomitant]
     Active Substance: BENSERAZIDE HYDROCHLORIDE\LEVODOPA
     Indication: Parkinson^s disease
     Dosage: 200 MG LEVODOPA, 50 MG BENSERAZIDE / TABLET
     Route: 048
     Dates: start: 20230218
  8. PIRACETAM [Concomitant]
     Active Substance: PIRACETAM
     Indication: Product used for unknown indication
     Dosage: 2400 MILLIGRAM
     Route: 048
  9. Adimet XR [Concomitant]
     Indication: Diabetes mellitus
     Dosage: 1000 MILLIGRAM
     Route: 048
     Dates: start: 2021
  10. ESCITALOPRAM [Concomitant]
     Active Substance: ESCITALOPRAM OXALATE
     Indication: Product used for unknown indication
     Dosage: 10 MILLIGRAM
     Route: 048

REACTIONS (3)
  - Arrhythmia [Unknown]
  - General physical health deterioration [Not Recovered/Not Resolved]
  - Renal failure [Not Recovered/Not Resolved]

NARRATIVE: CASE EVENT DATE: 20230218
